FAERS Safety Report 12356544 (Version 2)
Quarter: 2016Q3

REPORT INFORMATION
  Report Type: Report from Study
  Country: PL (occurrence: PL)
  Receive Date: 20160511
  Receipt Date: 20160706
  Transmission Date: 20161109
  Serious: Yes (Other)
  Sender: FDA-Public Use
  Company Number: PHHY2016PL062535

PATIENT
  Age: 67 Year
  Sex: Female

DRUGS (2)
  1. LAPATINIB [Suspect]
     Active Substance: LAPATINIB
     Indication: HER-2 POSITIVE BREAST CANCER
     Dosage: 1250 MG, QD (5 TABLETS AS A SINGLE DOSE)
     Route: 065
  2. CAPECITABINE. [Suspect]
     Active Substance: CAPECITABINE
     Indication: HER-2 POSITIVE BREAST CANCER
     Dosage: 2000 MG/M2, QD (IN TWO DIVIDED DOSES FOR THE FIRST 14 DAYS OF TREATMENT IN 21 DAY CYCLE)
     Route: 065

REACTIONS (4)
  - Thrombocytopenia [Unknown]
  - HER-2 positive breast cancer [Unknown]
  - Neutropenia [Unknown]
  - Malignant neoplasm progression [Unknown]
